FAERS Safety Report 7704564-1 (Version None)
Quarter: 2011Q3

REPORT INFORMATION
  Report Type: 
  Country: None (occurrence: None)
  Receive Date: 20110823
  Receipt Date: 20110815
  Transmission Date: 20111222
  Serious: Yes (Death, Hospitalization)
  Sender: FDA-Public Use
  Company Number: US-GLAXOSMITHKLINE-A0915577A

PATIENT
  Age: 68 Year
  Sex: Female

DRUGS (1)
  1. AVANDIA [Suspect]
     Indication: DIABETES MELLITUS
     Dosage: 4MG PER DAY
     Route: 048
     Dates: start: 19990101, end: 20010101

REACTIONS (9)
  - RENAL FAILURE [None]
  - CARDIAC PACEMAKER INSERTION [None]
  - ANGIOPLASTY [None]
  - CARDIAC FAILURE CONGESTIVE [None]
  - VENTRICULAR FIBRILLATION [None]
  - CORONARY ARTERY DISEASE [None]
  - STENT PLACEMENT [None]
  - DEATH [None]
  - SUPRAVENTRICULAR TACHYCARDIA [None]
